FAERS Safety Report 14089265 (Version 3)
Quarter: 2017Q4

REPORT INFORMATION
  Report Type: Report from Study
  Country: DE (occurrence: DE)
  Receive Date: 20171014
  Receipt Date: 20171127
  Transmission Date: 20180321
  Serious: Yes (Hospitalization, Other)
  Sender: FDA-Public Use
  Company Number: DE-BRISTOL-MYERS SQUIBB COMPANY-BMS-2017-079120

PATIENT
  Age: 84 Year
  Sex: Male

DRUGS (10)
  1. NIVOLUMAB [Suspect]
     Active Substance: NIVOLUMAB
     Indication: PRODUCT USED FOR UNKNOWN INDICATION
     Dosage: 250 MG, UNK
     Route: 065
     Dates: start: 20170301
  2. NIVOLUMAB [Suspect]
     Active Substance: NIVOLUMAB
     Indication: PRODUCT USED FOR UNKNOWN INDICATION
     Dosage: 255 MG, UNK
     Route: 065
     Dates: start: 20170425
  3. NIVOLUMAB [Suspect]
     Active Substance: NIVOLUMAB
     Indication: PRODUCT USED FOR UNKNOWN INDICATION
     Dosage: 260 MG, UNK
     Route: 065
     Dates: start: 20170711, end: 20170822
  4. NIVOLUMAB [Suspect]
     Active Substance: NIVOLUMAB
     Indication: PRODUCT USED FOR UNKNOWN INDICATION
     Dosage: 250 MG, UNK
     Route: 065
     Dates: start: 20170509, end: 20170523
  5. NIVOLUMAB [Suspect]
     Active Substance: NIVOLUMAB
     Indication: PRODUCT USED FOR UNKNOWN INDICATION
     Dosage: 260 MG, UNK
     Route: 065
     Dates: start: 20170314
  6. NIVOLUMAB [Suspect]
     Active Substance: NIVOLUMAB
     Indication: MALIGNANT MELANOMA
     Dosage: 260 MG, Q2WK
     Route: 042
     Dates: start: 20170214
  7. NIVOLUMAB [Suspect]
     Active Substance: NIVOLUMAB
     Indication: PRODUCT USED FOR UNKNOWN INDICATION
     Dosage: 240 MG, UNK
     Route: 065
     Dates: start: 20170627
  8. PREGABALIN. [Concomitant]
     Active Substance: PREGABALIN
     Indication: INTERVERTEBRAL DISC PROTRUSION
     Dosage: 1 ABSENT, UNK
     Route: 065
     Dates: start: 20170214
  9. NIVOLUMAB [Suspect]
     Active Substance: NIVOLUMAB
     Indication: PRODUCT USED FOR UNKNOWN INDICATION
     Dosage: 240 MG, UNK
     Route: 065
     Dates: start: 20170328, end: 20170411
  10. FLUPIRTINE MALEATE [Concomitant]
     Active Substance: FLUPIRTINE MALEATE
     Indication: INTERVERTEBRAL DISC PROTRUSION
     Dosage: 1 ABSENT, UNK
     Route: 065
     Dates: start: 20170214

REACTIONS (2)
  - Erythema multiforme [Recovered/Resolved]
  - Erysipelas [Unknown]

NARRATIVE: CASE EVENT DATE: 20170901
